FAERS Safety Report 10052720 (Version 1)
Quarter: 2014Q2

REPORT INFORMATION
  Report Type: Spontaneous
  Country: US (occurrence: US)
  Receive Date: 20140402
  Receipt Date: 20140402
  Transmission Date: 20141212
  Serious: Yes (Death)
  Sender: FDA-Public Use
  Company Number: US-PFIZER INC-2014091291

PATIENT
  Age: 49 Year
  Sex: Male

DRUGS (11)
  1. SUTENT [Suspect]
     Indication: RENAL CANCER
     Dosage: 25MG/12.5MG
     Dates: start: 20131227
  2. POLYETHYLENE GLYCOL [Concomitant]
     Dosage: UNK
  3. SALEX [Concomitant]
     Dosage: UNK
  4. SENNOSIDES [Concomitant]
     Dosage: UNK
  5. ASCORBIC ACID [Concomitant]
     Dosage: UNK
  6. PANTOPRAZOLE SODIUM [Concomitant]
     Dosage: UNK
  7. HYDROMORPHONE HYDROCHLORIDE [Concomitant]
     Dosage: UNK
  8. CLOBETASOL PROPIONATE [Concomitant]
     Dosage: UNK
  9. ENOXAPARIN SODIUM [Concomitant]
     Dosage: UNK
  10. FLUOCINOLONE ACETONIDE [Concomitant]
     Dosage: UNK
  11. FUROSEMIDE [Concomitant]
     Dosage: UNK

REACTIONS (1)
  - Death [Fatal]
